FAERS Safety Report 9337626 (Version 1)
Quarter: 2013Q2

REPORT INFORMATION
  Report Type: Report from Study
  Country: US (occurrence: US)
  Receive Date: 20130607
  Receipt Date: 20130607
  Transmission Date: 20140414
  Serious: No
  Sender: FDA-Public Use
  Company Number: PHEH2013US011250

PATIENT
  Sex: Female

DRUGS (5)
  1. TASIGNA [Suspect]
     Dosage: 400 MG, BID
     Route: 048
  2. PREDNISONE [Concomitant]
     Indication: LEUKAEMIA
  3. TAZTIA [Concomitant]
     Indication: HYPERTENSION
     Dosage: 360 MG, UNK
  4. SYNTHROID [Concomitant]
     Dosage: 137 MG, UNK
  5. OXYCODONE [Concomitant]

REACTIONS (3)
  - Pain in extremity [Unknown]
  - Headache [Unknown]
  - Neck pain [Unknown]
